FAERS Safety Report 7913865-3 (Version None)
Quarter: 2011Q4

REPORT INFORMATION
  Report Type: 
  Country: None (occurrence: None)
  Receive Date: 20111115
  Receipt Date: 20111103
  Transmission Date: 20120403
  Serious: Yes (Hospitalization, Other)
  Sender: FDA-Public Use
  Company Number: US-BAYER-201035916NA

PATIENT
  Age: 31 Year
  Sex: Female
  Weight: 86.621 kg

DRUGS (11)
  1. CITALOPRAM HYDROBROMIDE [Concomitant]
  2. CYCLOBENZAPRINE [Concomitant]
  3. SUDAFED 12 HOUR [Concomitant]
  4. CLARITHROMYCIN [Concomitant]
  5. TOPAMAX [Concomitant]
     Dosage: 50 MG/D, PRN
     Route: 048
  6. BENZONATATE [Concomitant]
  7. YAZ [Suspect]
     Indication: CONTRACEPTION
     Route: 048
     Dates: start: 20090625, end: 20100424
  8. CELEXA [Concomitant]
     Dosage: 40 MG, QD
     Route: 048
     Dates: start: 20060101
  9. IRON [Concomitant]
  10. VENTOLIN [Concomitant]
  11. IBUPROFEN [Concomitant]

REACTIONS (2)
  - CHOLECYSTITIS CHRONIC [None]
  - GALLBLADDER DISORDER [None]
